FAERS Safety Report 5820022-3 (Version None)
Quarter: 2008Q3

REPORT INFORMATION
  Report Type: 
  Country: None (occurrence: None)
  Receive Date: 20080718
  Receipt Date: 20080718
  Transmission Date: 20090109
  Serious: Yes (Other)
  Sender: FDA-Public Use
  Company Number: None

PATIENT
  Age: 64 Year
  Sex: Female
  Weight: 69.8539 kg

DRUGS (1)
  1. CLINDAMYCIN HCL [Suspect]
     Indication: INFECTION PROPHYLAXIS
     Dosage: 400 MG TWICE DAILY PO
     Route: 048
     Dates: start: 20080322, end: 20080329

REACTIONS (3)
  - DYSPEPSIA [None]
  - DYSPHAGIA [None]
  - THROAT IRRITATION [None]
